FAERS Safety Report 21640376 (Version 1)
Quarter: 2022Q4

REPORT INFORMATION
  Report Type: Spontaneous
  Country: FR (occurrence: FR)
  Receive Date: 20221124
  Receipt Date: 20221124
  Transmission Date: 20230112
  Serious: Yes (Hospitalization)
  Sender: FDA-Public Use
  Company Number: None

PATIENT
  Age: 82 Year
  Sex: Female
  Weight: 86 kg

DRUGS (3)
  1. OXYCODONE HYDROCHLORIDE [Suspect]
     Active Substance: OXYCODONE HYDROCHLORIDE
     Indication: Pain
     Dosage: 1 COMPRIM? 2 FOIS PAR JOUR SI BESOIN / 10 MILLIGRAM, DAILY, 1 TABLET TWICE A DAY IF NEEDED
     Route: 060
     Dates: start: 20220927
  2. FENTANYL [Suspect]
     Active Substance: FENTANYL
     Indication: Pain
     Dosage: 25 MICROGRAM, Q1H
     Route: 062
     Dates: start: 20220927
  3. AMITRIPTYLINE HYDROCHLORIDE [Concomitant]
     Active Substance: AMITRIPTYLINE HYDROCHLORIDE
     Indication: Pain
     Dosage: UNK
     Dates: start: 20220927

REACTIONS (3)
  - Hypotension [Recovering/Resolving]
  - Fall [Recovered/Resolved]
  - Bradypnoea [Recovering/Resolving]

NARRATIVE: CASE EVENT DATE: 20220928
